FAERS Safety Report 8585150-0 (Version None)
Quarter: 2012Q3

REPORT INFORMATION
  Report Type: 
  Country: None (occurrence: None)
  Receive Date: 20120810
  Receipt Date: 20120806
  Transmission Date: 20120928
  Serious: Yes (Other)
  Sender: FDA-Public Use
  Company Number: PHHY2012AR068857

PATIENT
  Sex: Male

DRUGS (1)
  1. EXFORGE HCT [Suspect]
     Indication: BLOOD PRESSURE
     Dosage: 1 DF (160MG VALS/ 5MG AMLO/ 12.5MG HCT), DAILY
     Dates: start: 20100101

REACTIONS (2)
  - OEDEMA PERIPHERAL [None]
  - INFARCTION [None]
